FAERS Safety Report 9028013 (Version 1)
Quarter: 2013Q1

REPORT INFORMATION
  Report Type: Spontaneous
  Country: US (occurrence: US)
  Receive Date: 20130123
  Receipt Date: 20130123
  Transmission Date: 20140127
  Serious: No
  Sender: FDA-Public Use
  Company Number: US-JNJFOC-20130106314

PATIENT
  Sex: Male
  Weight: 56.25 kg

DRUGS (5)
  1. DURAGESIC [Suspect]
     Indication: PAIN
     Route: 062
     Dates: start: 2001
  2. DURAGESIC [Suspect]
     Indication: PAIN
     Route: 062
  3. MYLAN FENTANYL TRANSDERMAL SYSTEM [Suspect]
     Indication: PAIN
     Route: 062
  4. MYLAN FENTANYL TRANSDERMAL SYSTEM [Suspect]
     Indication: PAIN
     Dosage: INITIATED ON AN UNSPECIFIED DATE IN 2004 OR 2005
     Route: 062
  5. WATSON FENTANYL TRANSDERMAL SYSTEM [Suspect]
     Indication: PAIN
     Dosage: INITIATED ON AN UNSPECIFIED DATE IN 2004 OR 2005
     Route: 062

REACTIONS (7)
  - Product quality issue [Unknown]
  - Wrong technique in drug usage process [Recovered/Resolved]
  - Headache [Recovered/Resolved]
  - Irritability [Unknown]
  - Wrong technique in drug usage process [Unknown]
  - Inadequate analgesia [Unknown]
  - Pain [Unknown]
